FAERS Safety Report 7768242-5 (Version None)
Quarter: 2011Q3

REPORT INFORMATION
  Report Type: 
  Country: None (occurrence: None)
  Receive Date: 20110919
  Receipt Date: 20110902
  Transmission Date: 20111222
  Serious: Yes (Hospitalization)
  Sender: FDA-Public Use
  Company Number: AUR-APL-2011-01070

PATIENT
  Age: 71 Year
  Sex: Male
  Weight: 83.9 kg

DRUGS (16)
  1. EPLERENONE [Suspect]
     Indication: CARDIAC FAILURE CONGESTIVE
     Dosage: (25 MG, EVERY OTHER DAY), ORAL
     Route: 048
     Dates: start: 20100915
  2. ASPIRIN [Concomitant]
  3. WARFARIN SODIUM [Concomitant]
  4. LASIX [Concomitant]
  5. COLECALCIFEROL (COLECALCIFEROL) [Concomitant]
  6. LIRAGLUTIDE (NN2211) (LIRAGLUTIDE) [Concomitant]
  7. COREG [Concomitant]
  8. LANOXIN [Concomitant]
  9. AMIODARONE HCL [Suspect]
     Dosage: 200 MG (200 MG, 1 IN 1 D), ORAL
     Route: 048
     Dates: start: 20070712
  10. FLOMAX [Concomitant]
  11. SIMVASTATIN [Suspect]
     Dosage: 40 MG (40 MG, 1 IN 1 D), ORAL
     Route: 048
     Dates: start: 20050429, end: 20110315
  12. METHIMAZOLE [Suspect]
     Indication: HYPERTHYROIDISM
     Dosage: 20 MG (10 MG, 2 IN 1 D), ORAL
     Route: 048
     Dates: start: 20110204, end: 20110315
  13. VITAMIN B12 [Concomitant]
  14. PREDNISONE [Concomitant]
  15. LANTUS [Concomitant]
  16. NOVOLOG [Concomitant]

REACTIONS (5)
  - LYMPHADENOPATHY [None]
  - CHOLECYSTITIS [None]
  - LIVER FUNCTION TEST ABNORMAL [None]
  - CHOLELITHIASIS [None]
  - ASTHENIA [None]
